FAERS Safety Report 11070357 (Version 1)
Quarter: 2015Q2

REPORT INFORMATION
  Report Type: Report from Study
  Country: MX (occurrence: MX)
  Receive Date: 20150427
  Receipt Date: 20150427
  Transmission Date: 20150821
  Serious: Yes (Other)
  Sender: FDA-Public Use
  Company Number: MX-SA-2015SA051643

PATIENT
  Age: 63 Year
  Sex: Male
  Weight: 76 kg

DRUGS (4)
  1. AMARYL [Suspect]
     Active Substance: GLIMEPIRIDE
     Indication: TYPE 2 DIABETES MELLITUS
     Route: 048
     Dates: start: 2009
  2. GLIBENCLAMIDE [Concomitant]
     Active Substance: GLYBURIDE
     Indication: TYPE 2 DIABETES MELLITUS
     Dates: end: 2009
  3. ENALAPRIL [Concomitant]
     Active Substance: ENALAPRIL
     Indication: HYPERTENSION
     Dosage: STRENGTH: 10MG
     Route: 048
     Dates: start: 2011
  4. ASPIRINA PROTECT [Concomitant]
     Active Substance: ASPIRIN
     Indication: CARDIOVASCULAR EVENT PROPHYLAXIS
     Route: 048
     Dates: start: 2011

REACTIONS (5)
  - Hypercholesterolaemia [Unknown]
  - Hypertension [Recovered/Resolved]
  - Hypertriglyceridaemia [Unknown]
  - Transient ischaemic attack [Recovered/Resolved]
  - Paraesthesia [Recovered/Resolved]

NARRATIVE: CASE EVENT DATE: 20150324
